FAERS Safety Report 5255318-X (Version None)
Quarter: 2007Q1

REPORT INFORMATION
  Report Type: 
  Country: None (occurrence: None)
  Receive Date: 20070305
  Receipt Date: 20070228
  Transmission Date: 20070707
  Serious: Yes (Death)
  Sender: FDA-Public Use
  Company Number: JP-JPN-A200700312

PATIENT
  Age: 21 Day
  Sex: Male
  Weight: 3.2 kg

DRUGS (24)
  1. FLOLAN [Suspect]
     Indication: PERSISTENT FOETAL CIRCULATION
     Route: 042
     Dates: start: 20061006, end: 20061026
  2. UNKNOWN DRUG [Concomitant]
     Route: 065
  3. VIAGRA [Concomitant]
     Indication: PERSISTENT FOETAL CIRCULATION
     Dosage: 9MG PER DAY
     Route: 048
     Dates: start: 20061010, end: 20061026
  4. UNKNOWN DRUG [Concomitant]
     Route: 065
  5. DORMICUM [Concomitant]
     Indication: SEDATION
     Route: 042
     Dates: start: 20061005, end: 20061005
  6. MORPHINE [Concomitant]
     Indication: SEDATION
     Route: 042
     Dates: start: 20061005, end: 20061010
  7. UNKNOWN NAME [Concomitant]
     Indication: HYPOTONIA
     Route: 042
     Dates: start: 20061005, end: 20061012
  8. UNKNOWN NAME [Concomitant]
     Indication: PATENT DUCTUS ARTERIOSUS
     Dates: start: 20061010, end: 20061026
  9. THYRADIN-S [Concomitant]
     Indication: HYPOTHYROIDISM
     Dosage: 1.5MG PER DAY
     Route: 048
     Dates: start: 20061018, end: 20061026
  10. INOVAN [Concomitant]
     Route: 042
     Dates: start: 20061006, end: 20061006
  11. INOVAN [Concomitant]
     Route: 042
     Dates: start: 20061020, end: 20061020
  12. INOVAN [Concomitant]
     Route: 042
     Dates: start: 20061021, end: 20061026
  13. GASTER [Concomitant]
     Dosage: 3MG PER DAY
     Route: 042
     Dates: start: 20061006, end: 20061026
  14. DOPAMINE HCL [Concomitant]
  15. VICCILLIN [Concomitant]
     Indication: INFECTION PROPHYLAXIS
     Dosage: 300MG PER DAY
     Route: 042
     Dates: start: 20061013, end: 20061017
  16. SOLU-CORTEF [Concomitant]
     Dosage: 10MG PER DAY
     Route: 042
     Dates: start: 20061014, end: 20061014
  17. SOLU-CORTEF [Concomitant]
     Dosage: 9.9MG PER DAY
     Route: 042
     Dates: start: 20061015, end: 20061015
  18. SOLU-CORTEF [Concomitant]
     Route: 042
     Dates: start: 20061016, end: 20061026
  19. FUROSEMIDE [Concomitant]
     Indication: CARDIAC FAILURE
     Dosage: 2MG PER DAY
     Route: 042
     Dates: start: 20061010, end: 20061010
  20. FUROSEMIDE [Concomitant]
     Route: 042
     Dates: start: 20061011, end: 20061011
  21. FUROSEMIDE [Concomitant]
     Dosage: 2MG PER DAY
     Route: 042
     Dates: start: 20061012, end: 20061012
  22. FUROSEMIDE [Concomitant]
     Dosage: 2MG PER DAY
     Route: 042
     Dates: start: 20061014, end: 20061014
  23. FUROSEMIDE [Concomitant]
     Route: 042
     Dates: start: 20061015, end: 20061026
  24. CEFAMEZIN [Concomitant]
     Indication: INFECTION PROPHYLAXIS
     Dosage: 320MG PER DAY
     Route: 042
     Dates: start: 20061006, end: 20061012

REACTIONS (5)
  - BRADYCARDIA [None]
  - DEATH [None]
  - OXYGEN SATURATION DECREASED [None]
  - PNEUMOTHORAX [None]
  - PULMONARY HAEMORRHAGE [None]
